FAERS Safety Report 10370363 (Version 1)
Quarter: 2014Q1

REPORT INFORMATION
  Report Type: Spontaneous
  Country: US (occurrence: None)
  Receive Date: 20140306
  Receipt Date: 20140306
  Transmission Date: 20141002
  Serious: Yes (Other)
  Sender: FDA-Public Use
  Company Number: 163-21880-13071596

PATIENT
  Age: 71 Year
  Sex: Female
  Weight: 61.7 kg

DRUGS (17)
  1. REVLIMID [Suspect]
     Indication: PLASMA CELL MYELOMA
     Dosage: 09-JUL-2010 - TEMPORARILY INTERRUPTED?10 MG, 21 IN 28 D, PO
     Route: 048
     Dates: start: 20100709
  2. EFFEXOR [Concomitant]
  3. DEXAMETHASONE (DEXAMETHASONE) (UNKNOWN) [Concomitant]
  4. ZOMETA (ZOLEDRONIC ACID) (UNKNOWN) [Concomitant]
  5. BIPHOSPHONATE (INJECTION) [Concomitant]
  6. ASCORBIC ACID [Concomitant]
  7. ASPIRIN (ACETYLSALICYLIC ACID) (UNKNOWN) (ACETYLSALICYLIC ACID) [Concomitant]
  8. CALTRATE PLUS [Concomitant]
  9. CITRUCEL [Concomitant]
  10. FISH OIL [Concomitant]
  11. MVI [Concomitant]
  12. OMEPRAZOLE [Concomitant]
  13. PANTOPRAZOLE [Concomitant]
  14. RANITIDINE HCL [Concomitant]
  15. VENLAFAXINE HCL [Concomitant]
  16. VITAMIN B12 [Concomitant]
  17. VITAMIN D3 [Concomitant]

REACTIONS (6)
  - Pancytopenia [None]
  - Haemoglobin decreased [None]
  - Platelet count decreased [None]
  - Neutropenia [None]
  - Diarrhoea [None]
  - Asthenia [None]
